FAERS Safety Report 25861197 (Version 1)
Quarter: 2025Q3

REPORT INFORMATION
  Report Type: Spontaneous
  Country: US (occurrence: US)
  Receive Date: 20250929
  Receipt Date: 20250929
  Transmission Date: 20251020
  Serious: Yes (Hospitalization, Other)
  Sender: EMPOWER PHARMACY
  Company Number: US-Empower Pharmacy-2185555

PATIENT
  Age: 49 Year
  Sex: Female
  Weight: 65.909 kg

DRUGS (1)
  1. GLUTATHIONE [Suspect]
     Active Substance: GLUTATHIONE
     Dates: start: 20250913

REACTIONS (5)
  - Influenza like illness [Recovered/Resolved]
  - Diverticulitis [Recovered/Resolved]
  - Pyrexia [Recovered/Resolved]
  - Abdominal discomfort [Recovered/Resolved]
  - Abdominal pain [Recovered/Resolved]

NARRATIVE: CASE EVENT DATE: 20250913
